FAERS Safety Report 10246228 (Version 1)
Quarter: 2014Q2

REPORT INFORMATION
  Report Type: Report from Study
  Country: DE (occurrence: DE)
  Receive Date: 20140619
  Receipt Date: 20140619
  Transmission Date: 20141212
  Serious: Yes (Other)
  Sender: FDA-Public Use
  Company Number: PHHY2014DE074997

PATIENT
  Sex: Female

DRUGS (6)
  1. FTY 720 [Suspect]
     Indication: MULTIPLE SCLEROSIS
     Dosage: 0.5 MG, PER DAY
     Route: 048
     Dates: start: 20110405
  2. VIVEO [Concomitant]
     Dates: start: 201007, end: 201110
  3. FAMPRIDINE [Concomitant]
     Dosage: 10 MG, BID
     Dates: start: 20120112
  4. VENLAFAXIN [Concomitant]
     Dosage: 38 MG, QD
     Dates: start: 20120902
  5. FLOXAL [Concomitant]
     Dates: start: 20140411
  6. INFLANEFRAN [Concomitant]
     Dates: start: 20140411

REACTIONS (1)
  - Uveitis [Recovered/Resolved]
